FAERS Safety Report 24613726 (Version 1)
Quarter: 2024Q4

REPORT INFORMATION
  Report Type: Spontaneous
  Country: NL (occurrence: NL)
  Receive Date: 20241113
  Receipt Date: 20241113
  Transmission Date: 20250114
  Serious: Yes (Death)
  Sender: BRISTOL-MYERS SQUIBB COMPANY
  Company Number: NL-BRISTOL-MYERS SQUIBB COMPANY-2024-177414

PATIENT
  Sex: Male

DRUGS (1)
  1. NIVOLUMAB [Suspect]
     Active Substance: NIVOLUMAB
     Indication: Non-small cell lung cancer

REACTIONS (1)
  - Post procedural infection [Fatal]
